FAERS Safety Report 13800909 (Version 1)
Quarter: 2017Q3

REPORT INFORMATION
  Report Type: Spontaneous
  Country: CA (occurrence: CA)
  Receive Date: 20170727
  Receipt Date: 20170727
  Transmission Date: 20171127
  Serious: Yes (Hospitalization)
  Sender: FDA-Public Use
  Company Number: CA-PFIZER INC-446114

PATIENT
  Age: 59 Year
  Sex: Male
  Weight: 76.8 kg

DRUGS (11)
  1. CYTARABINE. [Suspect]
     Active Substance: CYTARABINE
     Indication: PROSTATE CANCER
     Dosage: 0.97 GRAMS Q 12 HRSX4
     Route: 042
     Dates: start: 20091110, end: 20091112
  2. PREDNISONE. [Concomitant]
     Active Substance: PREDNISONE
     Indication: DRUG THERAPY
     Dosage: UNK
     Dates: start: 20080408
  3. COLACE [Concomitant]
     Active Substance: DOCUSATE SODIUM
     Indication: CONSTIPATION
     Dosage: STOPPED ^WKEND^
     Dates: start: 20091110
  4. NORVASC /00972401/ [Concomitant]
     Indication: HYPERTENSION
     Dosage: UNK
     Dates: start: 20090101
  5. TYLENOL WITH CODEINE [Concomitant]
     Active Substance: ACETAMINOPHEN\CODEINE PHOSPHATE
     Indication: PAIN
     Dosage: UNK
     Dates: start: 20090701
  6. SENOKOT [Concomitant]
     Active Substance: SENNOSIDES
     Indication: CONSTIPATION
     Dosage: STOPPED ON ^WKEND^
     Dates: start: 20091014
  7. TYLENOL EXTRA STRENGTH [Concomitant]
     Active Substance: ACETAMINOPHEN
     Indication: PAIN
     Dosage: UNK
     Dates: start: 20081101
  8. INDOMETHACIN /00003801/ [Concomitant]
     Active Substance: INDOMETHACIN
     Indication: PRODUCT USED FOR UNKNOWN INDICATION
     Dosage: NOT IN BETWEEN CYCLES-DURING TX ONLY
     Dates: start: 20091014, end: 20091115
  9. ZOLADEX [Concomitant]
     Active Substance: GOSERELIN ACETATE
     Indication: HORMONE THERAPY
     Dosage: UNK
     Dates: start: 20040801
  10. SERAX /00040901/ [Concomitant]
     Indication: INSOMNIA
     Dosage: UNK
     Dates: start: 20081001
  11. PREDNISONE. [Concomitant]
     Active Substance: PREDNISONE
     Indication: PRODUCT USED FOR UNKNOWN INDICATION
     Dosage: DURING TX ONLY
     Route: 047
     Dates: start: 20091013, end: 20091113

REACTIONS (3)
  - Abdominal distension [Not Recovered/Not Resolved]
  - Gastrointestinal disorder [Not Recovered/Not Resolved]
  - Fatigue [Not Recovered/Not Resolved]

NARRATIVE: CASE EVENT DATE: 20091123
